FAERS Safety Report 24647032 (Version 2)
Quarter: 2025Q4

REPORT INFORMATION
  Report Type: Spontaneous
  Country: CH (occurrence: CH)
  Receive Date: 20241121
  Receipt Date: 20251003
  Transmission Date: 20260118
  Serious: Yes (Other)
  Sender: LUNDBECK
  Company Number: None

PATIENT
  Sex: Female
  Weight: 3.79 kg

DRUGS (1)
  1. VYEPTI [Suspect]
     Active Substance: EPTINEZUMAB-JJMR
     Indication: Migraine
     Dosage: 300 MILLIGRAM
     Route: 064
     Dates: start: 20240109, end: 20240618

REACTIONS (1)
  - Drug exposure before pregnancy [Unknown]

NARRATIVE: CASE EVENT DATE: 20240109
